FAERS Safety Report 16218011 (Version 2)
Quarter: 2019Q2

REPORT INFORMATION
  Report Type: Report from Study
  Country: IT (occurrence: IT)
  Receive Date: 20190419
  Receipt Date: 20190524
  Transmission Date: 20190711
  Serious: Yes (Hospitalization)
  Sender: FDA-Public Use
  Company Number: IT-PFIZER INC-2019153194

PATIENT
  Age: 66 Year
  Sex: Female
  Weight: 50 kg

DRUGS (5)
  1. CARDICOR [Concomitant]
     Active Substance: BISOPROLOL
     Indication: TACHYCARDIA
     Dosage: UNK
     Route: 048
  2. LASIX [Concomitant]
     Active Substance: FUROSEMIDE
     Indication: DEEP VEIN THROMBOSIS
     Dosage: UNK
     Route: 048
  3. ATORVASTATINE [ATORVASTATIN CALCIUM] [Concomitant]
     Indication: HYPERCHOLESTEROLAEMIA
     Dosage: UNK
     Route: 048
     Dates: start: 20190214
  4. LORLATINIB [Suspect]
     Active Substance: LORLATINIB
     Indication: LUNG CANCER METASTATIC
     Dosage: 100 MG, 1X/DAY
     Route: 048
     Dates: start: 20181222, end: 20190406
  5. MEDROL [METHYLPREDNISOLONE ACETATE] [Concomitant]
     Active Substance: METHYLPREDNISOLONE ACETATE
     Dosage: UNK
     Route: 048

REACTIONS (1)
  - Pleural effusion [Not Recovered/Not Resolved]

NARRATIVE: CASE EVENT DATE: 20190401
